FAERS Safety Report 8873001 (Version 2)
Quarter: 2012Q4

REPORT INFORMATION
  Report Type: 
  Country: LT (occurrence: LT)
  Receive Date: 20121030
  Receipt Date: 20121107
  Transmission Date: 20130627
  Serious: Yes (Hospitalization, Other)
  Sender: FDA-Public Use
  Company Number: LT-ROCHE-1150529

PATIENT
  Age: 61 Year
  Sex: Female
  Weight: 50 kg

DRUGS (5)
  1. AVASTIN [Suspect]
     Indication: COLORECTAL CANCER METASTATIC
     Route: 042
     Dates: start: 20110704, end: 20120809
  2. LEUCOVORIN [Concomitant]
     Indication: COLORECTAL CANCER METASTATIC
     Route: 065
     Dates: start: 20110704, end: 20111001
  3. 5-FU [Concomitant]
     Indication: COLORECTAL CANCER METASTATIC
     Route: 065
     Dates: start: 20110704, end: 20111001
  4. OXALIPLATIN [Concomitant]
     Indication: COLORECTAL CANCER METASTATIC
     Route: 065
     Dates: start: 20110704, end: 20111001
  5. MEGESTROL [Concomitant]
     Indication: CACHEXIA
     Route: 065
     Dates: start: 20110704

REACTIONS (4)
  - Arthritis [Unknown]
  - Pyrexia [Unknown]
  - Intestinal obstruction [Unknown]
  - Pulmonary tuberculosis [Unknown]
